FAERS Safety Report 6782253-8 (Version None)
Quarter: 2010Q2

REPORT INFORMATION
  Report Type: 
  Country: None (occurrence: None)
  Receive Date: 20100621
  Receipt Date: 20100608
  Transmission Date: 20101027
  Serious: Yes (Other)
  Sender: FDA-Public Use
  Company Number: SE-WATSON-2010-07881

PATIENT
  Age: 59 Year
  Sex: Female

DRUGS (5)
  1. NIFEDIPINE ER (WATSON LABORATORIES) [Suspect]
     Indication: DRUG USE FOR UNKNOWN INDICATION
     Dosage: UNK
  2. METRONIDAZOLE [Suspect]
     Indication: DRUG USE FOR UNKNOWN INDICATION
     Dosage: UNK
  3. FLUOXETINE [Suspect]
     Indication: DRUG USE FOR UNKNOWN INDICATION
     Dosage: UNK
  4. PHENYTOIN [Suspect]
     Indication: EPILEPSY
     Dosage: UNK
  5. FLUCONAZOLE [Suspect]
     Indication: ORAL CANDIDIASIS
     Dosage: 50 MG, DAILY

REACTIONS (2)
  - DRUG INTERACTION [None]
  - DRUG TOXICITY [None]
